FAERS Safety Report 15709014 (Version 3)
Quarter: 2019Q4

REPORT INFORMATION
  Report Type: Spontaneous
  Country: CA (occurrence: CA)
  Receive Date: 20181211
  Receipt Date: 20191016
  Transmission Date: 20200122
  Serious: Yes (Death, Hospitalization)
  Sender: FDA-Public Use
  Company Number: CA-TEVA-2018-CA-986176

PATIENT
  Age: 76 Year
  Sex: Male

DRUGS (8)
  1. BIMATOPROST. [Concomitant]
     Active Substance: BIMATOPROST
     Route: 065
  2. ALLOPURINOL. [Concomitant]
     Active Substance: ALLOPURINOL
     Route: 065
  3. TAMSULOSIN [Concomitant]
     Active Substance: TAMSULOSIN
     Route: 065
  4. FUROSEMIDE. [Concomitant]
     Active Substance: FUROSEMIDE
     Route: 065
  5. SILDENAFIL CITRATE. [Suspect]
     Active Substance: SILDENAFIL CITRATE
     Indication: PULMONARY ARTERIAL HYPERTENSION
     Dosage: 60 MILLIGRAM DAILY;
     Route: 048
  6. ATORVASTATIN [Concomitant]
     Active Substance: ATORVASTATIN
     Route: 065
  7. OXYGEN. [Concomitant]
     Active Substance: OXYGEN
     Route: 065
  8. ASA [Concomitant]
     Active Substance: ASPIRIN
     Route: 065

REACTIONS (2)
  - Peripheral swelling [Fatal]
  - Death [Fatal]
